FAERS Safety Report 11794544 (Version 4)
Quarter: 2015Q4

REPORT INFORMATION
  Report Type: Spontaneous
  Country: CO (occurrence: CO)
  Receive Date: 20151202
  Receipt Date: 20151231
  Transmission Date: 20160305
  Serious: Yes (Death, Hospitalization, Other)
  Sender: FDA-Public Use
  Company Number: CO-JNJFOC-20151126437

PATIENT
  Age: 64 Year
  Sex: Male
  Weight: 40 kg

DRUGS (1)
  1. RISPERDAL CONSTA [Suspect]
     Active Substance: RISPERIDONE
     Indication: SCHIZOPHRENIA
     Route: 030
     Dates: start: 20130115, end: 20151209

REACTIONS (8)
  - Decreased appetite [Recovered/Resolved]
  - Drug dose omission [Recovered/Resolved]
  - Fluid retention [Fatal]
  - Dyspnoea [Recovered/Resolved]
  - Oxygen saturation decreased [Fatal]
  - Incoherent [Recovered/Resolved]
  - Myocardial infarction [Fatal]
  - Pneumonia [Fatal]

NARRATIVE: CASE EVENT DATE: 20151120
